FAERS Safety Report 17097091 (Version 1)
Quarter: 2019Q4

REPORT INFORMATION
  Report Type: Spontaneous
  Country: US (occurrence: US)
  Receive Date: 20191104
  Receipt Date: 20191104
  Transmission Date: 20200122
  Serious: Yes (Hospitalization)
  Sender: FDA-Public Use
  Company Number: None

PATIENT
  Age: 66 Year
  Sex: Female

DRUGS (18)
  1. BANOPHEN [Concomitant]
     Active Substance: DIPHENHYDRAMINE HYDROCHLORIDE
  2. TRIAMCINOLONE [Concomitant]
     Active Substance: TRIAMCINOLONE
  3. PREDNISONE. [Concomitant]
     Active Substance: PREDNISONE
  4. PROAIR HFA [Concomitant]
     Active Substance: ALBUTEROL SULFATE
  5. TOBRAMYCIN. [Concomitant]
     Active Substance: TOBRAMYCIN
  6. AMLODIPINE [Concomitant]
     Active Substance: AMLODIPINE BESYLATE
  7. SODIUM CHLORIDE 7% [Suspect]
     Active Substance: SODIUM CHLORIDE
     Indication: CYSTIC FIBROSIS
     Route: 055
     Dates: start: 20170118
  8. CEFUROXIME. [Concomitant]
     Active Substance: CEFUROXIME
  9. NEXIUM [Concomitant]
     Active Substance: ESOMEPRAZOLE MAGNESIUM
  10. PULMOZYME [Concomitant]
     Active Substance: DORNASE ALFA
  11. AZITHROMYCIN ANHYDROUS. [Concomitant]
     Active Substance: AZITHROMYCIN ANHYDROUS
  12. FLUTICASONE. [Concomitant]
     Active Substance: FLUTICASONE
  13. LOSARTAN POT [Concomitant]
     Active Substance: LOSARTAN POTASSIUM
  14. ALENDRONATE [Suspect]
     Active Substance: ALENDRONATE SODIUM
  15. CIPROFLOXACIN. [Concomitant]
     Active Substance: CIPROFLOXACIN
  16. MUCINEX ER [Concomitant]
  17. POLYETH GLYCOL [Concomitant]
  18. SEREVENT DISKUS [Concomitant]
     Active Substance: SALMETEROL XINAFOATE

REACTIONS (2)
  - Dyspnoea [None]
  - Infective pulmonary exacerbation of cystic fibrosis [None]

NARRATIVE: CASE EVENT DATE: 20191028
